FAERS Safety Report 7775504-4 (Version None)
Quarter: 2011Q3

REPORT INFORMATION
  Report Type: 
  Country: None (occurrence: None)
  Receive Date: 20110923
  Receipt Date: 20110920
  Transmission Date: 20111222
  Serious: Yes (Hospitalization, Other)
  Sender: FDA-Public Use
  Company Number: DE-ROCHE-776702

PATIENT
  Sex: Male

DRUGS (9)
  1. AVASTIN [Suspect]
     Indication: METASTATIC RENAL CELL CARCINOMA
     Route: 042
     Dates: start: 20090801, end: 20110301
  2. BISOPROLOL FUMARATE [Concomitant]
     Dosage: LONG-TERM MEDICATION
     Route: 048
  3. SIMVASTATIN [Concomitant]
     Dosage: LONG-TERM MEDICATION
     Route: 048
  4. ASPIRIN [Concomitant]
     Dosage: LONG-TERM MEDICATION
     Route: 048
  5. INTERFERON ALFA [Suspect]
     Indication: METASTATIC RENAL CELL CARCINOMA
     Route: 058
     Dates: start: 20090801, end: 20110301
  6. PANTOPRAZOLE [Concomitant]
     Dosage: LONG-TERM MEDICATION
     Route: 048
  7. GLYBURIDE [Concomitant]
     Dosage: LONG-TERM MEDICATION
     Route: 048
  8. CANDESARTAN CILEXETIL [Concomitant]
     Dosage: LONG-TERM MEDICATION
     Route: 048
  9. BERLINSULIN H BASAL [Concomitant]
     Dosage: FREQUENCY 0-0-0-28 IU, LONG-TERM MEDICATION
     Route: 048

REACTIONS (4)
  - CACHEXIA [None]
  - METABOLIC ACIDOSIS [None]
  - DECREASED APPETITE [None]
  - METABOLIC DISORDER [None]
